FAERS Safety Report 9350570 (Version 1)
Quarter: 2013Q2

REPORT INFORMATION
  Report Type: Spontaneous
  Country: US (occurrence: None)
  Receive Date: 20130613
  Receipt Date: 20130613
  Transmission Date: 20140414
  Serious: No
  Sender: FDA-Public Use
  Company Number: None

PATIENT
  Age: 49 Year
  Sex: Female

DRUGS (10)
  1. LETAIRIS [Suspect]
     Indication: PULMONARY ARTERIAL HYPERTENSION
     Route: 048
     Dates: start: 201209, end: 201303
  2. LETAIRIS [Concomitant]
  3. REVATIO [Concomitant]
  4. DIGOXIN [Concomitant]
  5. NORETHINDRONE ACETATE [Concomitant]
  6. VICODIN [Concomitant]
  7. COZAAR [Concomitant]
  8. HYDROCHLOROTHIAZIDE [Concomitant]
  9. PEPCID [Concomitant]
  10. QVAR [Concomitant]

REACTIONS (1)
  - Migraine [None]
